FAERS Safety Report 14893305 (Version 1)
Quarter: 2018Q2

REPORT INFORMATION
  Report Type: Spontaneous
  Country: JP (occurrence: JP)
  Receive Date: 20180514
  Receipt Date: 20180514
  Transmission Date: 20180711
  Serious: Yes (Other)
  Sender: FDA-Public Use
  Company Number: JP-VALIDUS PHARMACEUTICALS LLC-JP-2018VAL000761

PATIENT
  Sex: Female

DRUGS (3)
  1. TRICHLORMETHIAZIDE [Suspect]
     Active Substance: TRICHLORMETHIAZIDE
     Indication: OESOPHAGEAL VARICES HAEMORRHAGE
     Dosage: UNK
     Route: 065
  2. SPIRONOLACTONE. [Suspect]
     Active Substance: SPIRONOLACTONE
     Indication: OESOPHAGEAL VARICES HAEMORRHAGE
     Dosage: UNK
     Route: 065
  3. FUROSEMIDE. [Suspect]
     Active Substance: FUROSEMIDE
     Indication: OESOPHAGEAL VARICES HAEMORRHAGE
     Dosage: UNK
     Route: 065

REACTIONS (1)
  - Ascites [Unknown]
